FAERS Safety Report 8181750-0 (Version None)
Quarter: 2012Q1

REPORT INFORMATION
  Report Type: 
  Country: None (occurrence: None)
  Receive Date: 20120302
  Receipt Date: 20120223
  Transmission Date: 20120608
  Serious: Yes (Other)
  Sender: FDA-Public Use
  Company Number: PHHY2012AU015197

PATIENT

DRUGS (1)
  1. PROMETHAZINE [Suspect]
     Indication: SEASONAL ALLERGY
     Route: 048
     Dates: start: 20120223, end: 20120223

REACTIONS (4)
  - HEADACHE [None]
  - DIZZINESS [None]
  - TREMOR [None]
  - SWOLLEN TONGUE [None]
